FAERS Safety Report 12203965 (Version 2)
Quarter: 2016Q2

REPORT INFORMATION
  Report Type: Spontaneous
  Country: US (occurrence: US)
  Receive Date: 20160323
  Receipt Date: 20160406
  Transmission Date: 20160815
  Serious: Yes (Disabling)
  Sender: FDA-Public Use
  Company Number: US-IPSEN BIOPHARMACEUTICALS, INC.-2016-02109

PATIENT
  Age: 42 Year
  Sex: Female

DRUGS (1)
  1. DYSPORT [Suspect]
     Active Substance: ABOBOTULINUMTOXINA
     Indication: SKIN WRINKLING
     Dosage: 40 UNITS
     Route: 030
     Dates: start: 20160303, end: 20160303

REACTIONS (6)
  - Presyncope [Recovering/Resolving]
  - Dizziness [Recovered/Resolved]
  - Throat irritation [Recovered/Resolved]
  - Headache [Recovered/Resolved]
  - Nervousness [Recovered/Resolved]
  - Vision blurred [Recovered/Resolved]

NARRATIVE: CASE EVENT DATE: 20160303
